FAERS Safety Report 7015483-0 (Version None)
Quarter: 2010Q3

REPORT INFORMATION
  Report Type: 
  Country: None (occurrence: None)
  Receive Date: 20100927
  Receipt Date: 20100920
  Transmission Date: 20110219
  Serious: Yes (Other)
  Sender: FDA-Public Use
  Company Number: FR-BAYER-201040091GPV

PATIENT
  Age: 84 Year
  Sex: Female

DRUGS (1)
  1. FLUDARABINE [Suspect]
     Indication: LYMPHOMA
     Route: 065

REACTIONS (3)
  - BACTERAEMIA [None]
  - HISTIOCYTOSIS HAEMATOPHAGIC [None]
  - PYREXIA [None]
